FAERS Safety Report 21046777 (Version 1)
Quarter: 2022Q3

REPORT INFORMATION
  Report Type: Spontaneous
  Country: DE (occurrence: DE)
  Receive Date: 20220706
  Receipt Date: 20220706
  Transmission Date: 20221027
  Serious: No
  Sender: FDA-Public Use
  Company Number: DE-ALKEM LABORATORIES LIMITED-DE-ALKEM-2022-04559

PATIENT
  Sex: Female

DRUGS (1)
  1. IBUPROFEN [Suspect]
     Active Substance: IBUPROFEN
     Indication: Product used for unknown indication
     Dosage: 2 DOSAGE FORM, EVERY 1 DAY
     Route: 065
     Dates: start: 20220429

REACTIONS (1)
  - Acne [Not Recovered/Not Resolved]

NARRATIVE: CASE EVENT DATE: 20220501
